FAERS Safety Report 5689903-8 (Version None)
Quarter: 2008Q1

REPORT INFORMATION
  Report Type: 
  Country: None (occurrence: None)
  Receive Date: 20080331
  Receipt Date: 20080331
  Transmission Date: 20080703
  Serious: Yes (Other)
  Sender: FDA-Public Use
  Company Number: None

PATIENT
  Age: 56 Year
  Sex: Female
  Weight: 49.8957 kg

DRUGS (1)
  1. ACTONEL [Suspect]
     Indication: OSTEOPENIA
     Dosage: 35 MG WEEKLY PO
     Route: 048
     Dates: start: 20070701, end: 20080122

REACTIONS (30)
  - ABASIA [None]
  - ACTIVITIES OF DAILY LIVING IMPAIRED [None]
  - ARTHRALGIA [None]
  - ARTHROPATHY [None]
  - BACK PAIN [None]
  - BONE PAIN [None]
  - CONNECTIVE TISSUE DISORDER [None]
  - DYSPHAGIA [None]
  - DYSPNOEA [None]
  - DYSSTASIA [None]
  - GASTROINTESTINAL PAIN [None]
  - HOT FLUSH [None]
  - INFLUENZA LIKE ILLNESS [None]
  - INSOMNIA [None]
  - MOBILITY DECREASED [None]
  - MUSCULAR WEAKNESS [None]
  - MUSCULOSKELETAL CHEST PAIN [None]
  - MUSCULOSKELETAL PAIN [None]
  - MYALGIA [None]
  - MYOSITIS [None]
  - NECK PAIN [None]
  - NEPHROLITHIASIS [None]
  - OEDEMA [None]
  - OEDEMA PERIPHERAL [None]
  - PAIN [None]
  - PAIN IN EXTREMITY [None]
  - PAIN IN JAW [None]
  - PERIARTHRITIS [None]
  - PHOTOPHOBIA [None]
  - VISION BLURRED [None]
